FAERS Safety Report 4965293-0 (Version None)
Quarter: 2006Q1

REPORT INFORMATION
  Report Type: 
  Country: None (occurrence: None)
  Receive Date: 20060201
  Receipt Date: 20051208
  Transmission Date: 20060701
  Serious: No
  Sender: FDA-Public Use
  Company Number: 2005PV005684

PATIENT
  Age: 63 Year
  Sex: Female

DRUGS (11)
  1. BYETTA [Suspect]
     Indication: DRUG USE FOR UNKNOWN INDICATION
     Dosage: 10 MCG; SC
     Route: 058
     Dates: start: 20050101, end: 20051208
  2. AVALIDE [Concomitant]
  3. ASCORBIC ACID [Concomitant]
  4. LEXAPRO [Concomitant]
  5. COMBIVENT [Concomitant]
  6. ALLEGRA [Concomitant]
  7. ADVAIR DISKUS 100/50 [Concomitant]
  8. COREG [Concomitant]
  9. MOBIC [Concomitant]
  10. POTASSIUM [Concomitant]
  11. CARDIZEM LA [Concomitant]

REACTIONS (2)
  - BLOOD PRESSURE INCREASED [None]
  - VISION BLURRED [None]
